FAERS Safety Report 9267933 (Version 2)
Quarter: 2013Q2

REPORT INFORMATION
  Report Type: Spontaneous
  Country: US (occurrence: US)
  Receive Date: 20130502
  Receipt Date: 20130530
  Transmission Date: 20140414
  Serious: No
  Sender: FDA-Public Use
  Company Number: US-ASTRAZENECA-2013SE26863

PATIENT
  Age: 65 Year
  Sex: Female
  Weight: 68 kg

DRUGS (3)
  1. PULMICORT FLEXHALER [Suspect]
     Indication: ASTHMA
     Route: 055
     Dates: start: 20130318
  2. PULMICORT FLEXHALER [Suspect]
     Indication: ASTHMA
     Dosage: ONE PUFF BID
     Route: 055
  3. PROAIR [Concomitant]

REACTIONS (4)
  - Chest pain [Not Recovered/Not Resolved]
  - Crying [Not Recovered/Not Resolved]
  - Cough [Not Recovered/Not Resolved]
  - Incorrect dose administered [Unknown]
